FAERS Safety Report 9100601 (Version 1)
Quarter: 2013Q1

REPORT INFORMATION
  Report Type: Spontaneous
  Country: BR (occurrence: BR)
  Receive Date: 20130215
  Receipt Date: 20130215
  Transmission Date: 20140127
  Serious: Yes (Hospitalization)
  Sender: FDA-Public Use
  Company Number: BR-ASTRAZENECA-2013SE09284

PATIENT
  Age: 78 Year
  Sex: Female
  Weight: 74 kg

DRUGS (4)
  1. ATACAND [Suspect]
     Indication: HYPERTENSION
     Route: 048
  2. ANASTROZOLE [Suspect]
     Indication: BREAST CANCER FEMALE
     Dosage: UNKNOWN DOSE ONCE DAILY
     Route: 048
     Dates: start: 2011
  3. PURAN T4 [Concomitant]
     Route: 048
  4. SIMVASTATINA [Concomitant]
     Indication: HYPERCHOLESTEROLAEMIA
     Route: 048

REACTIONS (4)
  - Breast cancer female [Recovering/Resolving]
  - Thrombosis [Recovered/Resolved]
  - Pain in extremity [Not Recovered/Not Resolved]
  - Spinal pain [Not Recovered/Not Resolved]
